FAERS Safety Report 15151762 (Version 2)
Quarter: 2018Q3

REPORT INFORMATION
  Report Type: Spontaneous
  Country: US (occurrence: US)
  Receive Date: 20180716
  Receipt Date: 20180731
  Transmission Date: 20181010
  Serious: Yes (Other)
  Sender: FDA-Public Use
  Company Number: US-BEH-2018092707

PATIENT
  Age: 57 Year
  Sex: Female

DRUGS (3)
  1. PRIVIGEN [Suspect]
     Active Substance: HUMAN IMMUNOGLOBULIN G
     Indication: IMMUNODEFICIENCY COMMON VARIABLE
     Dosage: 650 MG/KG, Q3W
     Route: 065
  2. PRIVIGEN [Suspect]
     Active Substance: HUMAN IMMUNOGLOBULIN G
     Indication: HYPOGAMMAGLOBULINAEMIA
     Dosage: 650 MG/KG, TOT
     Route: 065
     Dates: start: 20180614, end: 20180614
  3. PRIVIGEN [Suspect]
     Active Substance: HUMAN IMMUNOGLOBULIN G
     Indication: SELECTIVE IGG SUBCLASS DEFICIENCY
     Dosage: 650 MG/KG, TOT
     Route: 065
     Dates: start: 20180709, end: 20180709

REACTIONS (2)
  - Type 1 diabetes mellitus [Unknown]
  - Autoantibody positive [Unknown]

NARRATIVE: CASE EVENT DATE: 2018
